FAERS Safety Report 12473036 (Version 2)
Quarter: 2016Q3

REPORT INFORMATION
  Report Type: Spontaneous
  Country: US (occurrence: US)
  Receive Date: 20160616
  Receipt Date: 20160705
  Transmission Date: 20161109
  Serious: Yes (Other)
  Sender: FDA-Public Use
  Company Number: US-BAYER-2016-116967

PATIENT
  Age: 23 Year
  Sex: Female

DRUGS (1)
  1. MIRENA [Suspect]
     Active Substance: LEVONORGESTREL
     Indication: CONTRACEPTION
     Dosage: 20 MCG/24HR, CONT
     Route: 015
     Dates: start: 20160111, end: 20160512

REACTIONS (4)
  - Unintentional medical device removal [None]
  - Genital haemorrhage [None]
  - Device expulsion [None]
  - Abdominal pain lower [None]

NARRATIVE: CASE EVENT DATE: 20160511
